FAERS Safety Report 7717565-4 (Version None)
Quarter: 2011Q3

REPORT INFORMATION
  Report Type: 
  Country: None (occurrence: None)
  Receive Date: 20110830
  Receipt Date: 20110817
  Transmission Date: 20111222
  Serious: No
  Sender: FDA-Public Use
  Company Number: US-B.I. PHARMACEUTICALS,INC./RIDGEFIELD-2011-BP-20214BP

PATIENT
  Age: 86 Year
  Sex: Male

DRUGS (1)
  1. PRADAXA [Suspect]
     Dosage: 300 MG
     Dates: start: 20110812

REACTIONS (2)
  - HAEMATOMA [None]
  - INTERNATIONAL NORMALISED RATIO INCREASED [None]
